FAERS Safety Report 9302085 (Version 1)
Quarter: 2013Q2

REPORT INFORMATION
  Report Type: Spontaneous
  Country: FR (occurrence: FR)
  Receive Date: 20130521
  Receipt Date: 20130521
  Transmission Date: 20140414
  Serious: Yes (Death, Hospitalization)
  Sender: FDA-Public Use
  Company Number: FR-B.I. PHARMACEUTICALS,INC./RIDGEFIELD-2013-FF-01267FF

PATIENT
  Age: 84 Year
  Sex: Female

DRUGS (9)
  1. PRADAXA [Suspect]
     Indication: ATRIAL FIBRILLATION
     Dosage: 220 MG
     Route: 048
     Dates: start: 20130320, end: 20130327
  2. ALDACTONE [Suspect]
     Route: 048
     Dates: start: 20130319, end: 20130409
  3. CORDARONE [Suspect]
     Indication: ATRIAL FIBRILLATION
     Route: 048
     Dates: start: 20130322, end: 20130410
  4. MOTILIUM [Suspect]
     Route: 048
     Dates: start: 20130320, end: 20130325
  5. TANAKAN [Suspect]
     Route: 048
     Dates: start: 201303, end: 20130325
  6. DOLIPRANE [Suspect]
     Route: 048
     Dates: start: 20130321, end: 20130325
  7. AMLOR [Suspect]
     Route: 048
     Dates: start: 201210, end: 20130327
  8. GAVISCON [Suspect]
     Route: 048
     Dates: start: 20130321, end: 20130325
  9. HYPERIUM [Suspect]
     Route: 048
     Dates: start: 201302, end: 20130327

REACTIONS (5)
  - Lung disorder [Fatal]
  - Cardiac failure [Fatal]
  - Renal failure acute [Fatal]
  - Rash maculo-papular [Not Recovered/Not Resolved]
  - Drug administration error [Recovered/Resolved]
